FAERS Safety Report 9269939 (Version 1)
Quarter: 2013Q2

REPORT INFORMATION
  Report Type: Spontaneous
  Country: US (occurrence: US)
  Receive Date: 20130503
  Receipt Date: 20130503
  Transmission Date: 20140414
  Serious: No
  Sender: FDA-Public Use
  Company Number: US-PFIZER INC-2013135356

PATIENT
  Age: 41 Year
  Sex: Female
  Weight: 88.44 kg

DRUGS (3)
  1. LYRICA [Suspect]
     Indication: FIBROMYALGIA
     Dosage: 50 MG, 1X/DAY
     Route: 048
     Dates: start: 20130313, end: 201303
  2. LYRICA [Suspect]
     Dosage: 50 MG, 2X/DAY
     Route: 048
     Dates: start: 201303
  3. XANAX [Concomitant]
     Dosage: 0.5 MG, 2X/DAY

REACTIONS (3)
  - Drug ineffective [Not Recovered/Not Resolved]
  - Somnolence [Not Recovered/Not Resolved]
  - Hypersomnia [Not Recovered/Not Resolved]
